FAERS Safety Report 5524862-X (Version None)
Quarter: 2007Q4

REPORT INFORMATION
  Report Type: 
  Country: None (occurrence: None)
  Receive Date: 20071126
  Receipt Date: 20071123
  Transmission Date: 20080405
  Serious: Yes (Life-Threatening, Other)
  Sender: FDA-Public Use
  Company Number: PHBS2007BR14838

PATIENT
  Age: 57 Year
  Sex: Female
  Weight: 52 kg

DRUGS (4)
  1. FORASEQ [Suspect]
     Indication: ASTHMA
     Dosage: 1 DF, Q12H
  2. DORFLEX [Concomitant]
     Dosage: 1 DF, QHS
     Route: 048
  3. VERAPAMIL [Concomitant]
     Dosage: 80 MG, Q12H
     Route: 048
  4. ENALAPRIL MALEATE [Concomitant]
     Dosage: 10 MG, Q12H
     Route: 048

REACTIONS (5)
  - ABASIA [None]
  - ASPHYXIA [None]
  - DRUG INEFFECTIVE [None]
  - DYSPNOEA [None]
  - FATIGUE [None]
